FAERS Safety Report 6609370-7 (Version None)
Quarter: 2010Q1

REPORT INFORMATION
  Report Type: 
  Country: None (occurrence: None)
  Receive Date: 20100224
  Receipt Date: 20100209
  Transmission Date: 20100710
  Serious: Yes (Death)
  Sender: FDA-Public Use
  Company Number: 2010000503

PATIENT
  Age: 81 Year
  Sex: Male

DRUGS (3)
  1. TARCEVA [Suspect]
     Indication: LUNG SQUAMOUS CELL CARCINOMA STAGE UNSPECIFIED
     Dosage: (100 MG) ,ORAL
     Route: 048
     Dates: start: 20091101, end: 20100101
  2. PANTOPRAZOLE SODIUM [Concomitant]
  3. TRAMADOL HYDROHLORIDE [Concomitant]

REACTIONS (1)
  - APPENDICITIS PERFORATED [None]
